FAERS Safety Report 7203447-3 (Version None)
Quarter: 2010Q4

REPORT INFORMATION
  Report Type: 
  Country: None (occurrence: None)
  Receive Date: 20101230
  Receipt Date: 20101220
  Transmission Date: 20110411
  Serious: Yes (Death)
  Sender: FDA-Public Use
  Company Number: US-ABBOTT-10P-163-0680097-00

PATIENT
  Sex: Female
  Weight: 96.611 kg

DRUGS (6)
  1. ZEMPLAR [Suspect]
     Indication: RENAL OSTEODYSTROPHY
     Dates: start: 20050124
  2. RENAGEL [Concomitant]
     Indication: RENAL FAILURE CHRONIC
     Dates: start: 20010517
  3. JANUVIA [Concomitant]
     Indication: DIABETES MELLITUS
     Dates: start: 20080121
  4. SIMVASTATIN [Concomitant]
     Indication: HYPERLIPIDAEMIA
     Dates: start: 20080519
  5. LASIX [Concomitant]
     Indication: METABOLIC DISORDER
     Dates: start: 20010102
  6. AVAPRO [Concomitant]
     Indication: RENAL FAILURE CHRONIC
     Dates: start: 20010102

REACTIONS (1)
  - DEATH [None]
